FAERS Safety Report 12926474 (Version 2)
Quarter: 2017Q1

REPORT INFORMATION
  Report Type: Spontaneous
  Country: US (occurrence: US)
  Receive Date: 20161109
  Receipt Date: 20170313
  Transmission Date: 20170428
  Serious: Yes (Other)
  Sender: FDA-Public Use
  Company Number: US-TEVA-710822USA

PATIENT
  Age: 54 Year
  Sex: Female

DRUGS (3)
  1. AMPYRA [Concomitant]
     Active Substance: DALFAMPRIDINE
  2. COPAXONE [Suspect]
     Active Substance: GLATIRAMER ACETATE
     Dosage: UNKNOWN FORM STRENGTH
  3. OXYBUTYNIN [Concomitant]
     Active Substance: OXYBUTYNIN

REACTIONS (2)
  - Drug ineffective [Unknown]
  - Leukopenia [Recovered/Resolved]

NARRATIVE: CASE EVENT DATE: 2009
